FAERS Safety Report 4604404-3 (Version None)
Quarter: 2005Q2

REPORT INFORMATION
  Report Type: 
  Country: None (occurrence: None)
  Receive Date: 20050214
  Receipt Date: 20041228
  Transmission Date: 20051028
  Serious: No
  Sender: FDA-Public Use
  Company Number: US_0412108746

PATIENT
  Age: 83 Year
  Sex: Male
  Weight: 100 kg

DRUGS (5)
  1. CIALIS [Suspect]
     Indication: ERECTILE DYSFUNCTION
     Dosage: 20 MG
     Dates: start: 20041101
  2. GLYBURIDE [Concomitant]
  3. METFORMIN HCL [Concomitant]
  4. METOPROLOL SUCCINATE [Concomitant]
  5. NEUROGEN [Concomitant]

REACTIONS (1)
  - THERAPEUTIC RESPONSE DECREASED [None]
